FAERS Safety Report 5909007-6 (Version None)
Quarter: 2008Q4

REPORT INFORMATION
  Report Type: 
  Country: None (occurrence: None)
  Receive Date: 20081006
  Receipt Date: 20080924
  Transmission Date: 20090506
  Serious: Yes (Death, Other)
  Sender: FDA-Public Use
  Company Number: AT-ROCHE-587088

PATIENT
  Age: 7 Year
  Sex: Female

DRUGS (11)
  1. MYCOPHENOLATE MOFETIL [Suspect]
     Route: 048
  2. ETOPOSIDE [Suspect]
     Route: 065
  3. PREDNISOLONE [Suspect]
     Route: 065
  4. CYCLOSPORINE [Concomitant]
     Indication: PROPHYLAXIS
     Route: 065
  5. AMPHOTERICIN B [Concomitant]
     Dosage: ADMINISTERED AS A 2-HOUR INFUSION.
     Route: 042
  6. CASPOFUNGIN [Concomitant]
     Route: 042
  7. NEUPOGEN [Concomitant]
     Route: 058
  8. NEUPOGEN [Concomitant]
     Route: 058
  9. GRANULOCYTE TRANSFUSION [Concomitant]
  10. DEXAMETHASONE [Concomitant]
  11. VORICONAZOLE [Concomitant]

REACTIONS (4)
  - FUNGUS SEROLOGY TEST POSITIVE [None]
  - HISTIOCYTOSIS HAEMATOPHAGIC [None]
  - HYPOTENSION [None]
  - NEUTROPENIA [None]
